FAERS Safety Report 15504870 (Version 3)
Quarter: 2019Q1

REPORT INFORMATION
  Report Type: Spontaneous
  Country: US (occurrence: US)
  Receive Date: 20181016
  Receipt Date: 20190207
  Transmission Date: 20190417
  Serious: No
  Sender: FDA-Public Use
  Company Number: US-SA-2018SA283553

PATIENT
  Age: 11 Year
  Sex: Female
  Weight: 31.75 kg

DRUGS (11)
  1. HEPARIN [Concomitant]
     Active Substance: HEPARIN SODIUM
     Indication: FLUSHING
     Dosage: UNK, UNK
     Route: 042
     Dates: start: 20180402
  2. ALBUTEROL [SALBUTAMOL] [Concomitant]
     Active Substance: ALBUTEROL
     Dosage: 1 UNK, UNK
     Route: 055
     Dates: start: 20180816
  3. STERILE WATER [Concomitant]
     Active Substance: WATER
     Dosage: UNK, UNK
     Route: 042
     Dates: start: 20180402
  4. CEFDINIR. [Concomitant]
     Active Substance: CEFDINIR
     Dosage: UNK, PRN
     Dates: start: 20130425
  5. ZYRTEC [Concomitant]
     Active Substance: CETIRIZINE HYDROCHLORIDE
     Dosage: 2.5 ML, QD
     Route: 048
     Dates: start: 20120305
  6. EPINEPHRINE. [Concomitant]
     Active Substance: EPINEPHRINE
     Indication: ANAPHYLACTIC REACTION
     Dosage: 0.3 MG, UNK
     Route: 030
     Dates: start: 20180402
  7. LMX [LIDOCAINE] [Concomitant]
     Indication: PREMEDICATION
     Dosage: 4 %, UNK
     Dates: start: 20180402
  8. HYDROCODONE/ACETAMINOPHEN [Concomitant]
     Active Substance: ACETAMINOPHEN\HYDROCODONE
     Dosage: 6.5 ML, Q4H AS NEEDED
     Dates: start: 20151210
  9. NORMAL SALINE [Concomitant]
     Active Substance: SODIUM CHLORIDE
     Indication: FLUSHING
     Dosage: 0.9 %, UNK
     Route: 041
     Dates: start: 20180402
  10. SODIUM CHLORIDE. [Concomitant]
     Active Substance: SODIUM CHLORIDE
     Indication: FLUSHING
     Dosage: 0.9 %, UNK
     Route: 042
     Dates: start: 20180402
  11. CEREZYME [Suspect]
     Active Substance: IMIGLUCERASE
     Indication: GAUCHER^S DISEASE
     Dosage: 62.9 U/KG, QOW
     Route: 041
     Dates: start: 20100922

REACTIONS (2)
  - Ear infection [Unknown]
  - Ear discomfort [Unknown]
